FAERS Safety Report 7009110-6 (Version None)
Quarter: 2010Q3

REPORT INFORMATION
  Report Type: 
  Country: None (occurrence: None)
  Receive Date: 20100923
  Receipt Date: 20100803
  Transmission Date: 20110219
  Serious: No
  Sender: FDA-Public Use
  Company Number: US-JNJFOC-20100708021

PATIENT
  Sex: Female
  Weight: 91.63 kg

DRUGS (2)
  1. INVEGA SUSTENNA [Suspect]
     Indication: PRODUCT USED FOR UNKNOWN INDICATION
     Route: 030
  2. INVEGA SUSTENNA [Suspect]
     Route: 030

REACTIONS (3)
  - CHILLS [None]
  - MUSCLE FATIGUE [None]
  - PAIN IN EXTREMITY [None]
